FAERS Safety Report 24953540 (Version 1)
Quarter: 2025Q1

REPORT INFORMATION
  Report Type: Spontaneous
  Country: US (occurrence: US)
  Receive Date: 20250211
  Receipt Date: 20250211
  Transmission Date: 20250409
  Serious: Yes (Hospitalization, Other)
  Sender: SANOFI AVENTIS
  Company Number: US-SA-2025SA039040

PATIENT
  Sex: Female
  Weight: 122.73 kg

DRUGS (10)
  1. DUPIXENT [Suspect]
     Active Substance: DUPILUMAB
     Indication: Asthma
     Dosage: 300 MG, QOW
     Route: 058
     Dates: start: 202002
  2. BUMETANIDE [Suspect]
     Active Substance: BUMETANIDE
  3. HUMALOG [Concomitant]
     Active Substance: INSULIN LISPRO
  4. OZEMPIC [Concomitant]
     Active Substance: SEMAGLUTIDE
  5. METOPROLOL SUCCINATE [Concomitant]
     Active Substance: METOPROLOL SUCCINATE
  6. MONTELUKAST SODIUM [Concomitant]
     Active Substance: MONTELUKAST SODIUM
  7. LISINOPRIL [Concomitant]
     Active Substance: LISINOPRIL
  8. FARXIGA [Concomitant]
     Active Substance: DAPAGLIFLOZIN PROPANEDIOL
  9. CLOBETASOL PROPIONATE [Concomitant]
     Active Substance: CLOBETASOL PROPIONATE
  10. BUDESONIDE [Concomitant]
     Active Substance: BUDESONIDE

REACTIONS (14)
  - COVID-19 [Not Recovered/Not Resolved]
  - Pneumonia [Not Recovered/Not Resolved]
  - Sepsis [Not Recovered/Not Resolved]
  - Heart failure with preserved ejection fraction [Not Recovered/Not Resolved]
  - Pulmonary hypertension [Not Recovered/Not Resolved]
  - Cellulitis [Not Recovered/Not Resolved]
  - Heart rate irregular [Not Recovered/Not Resolved]
  - Peripheral swelling [Not Recovered/Not Resolved]
  - Electrolyte imbalance [Unknown]
  - Diabetes mellitus [Not Recovered/Not Resolved]
  - Septic shock [Not Recovered/Not Resolved]
  - Limb injury [Not Recovered/Not Resolved]
  - Thyroid hormones increased [Not Recovered/Not Resolved]
  - Nausea [Not Recovered/Not Resolved]

NARRATIVE: CASE EVENT DATE: 20231201
